FAERS Safety Report 8481365-0 (Version None)
Quarter: 2012Q3

REPORT INFORMATION
  Report Type: 
  Country: None (occurrence: None)
  Receive Date: 20120702
  Receipt Date: 20120626
  Transmission Date: 20120928
  Serious: Yes (Hospitalization)
  Sender: FDA-Public Use
  Company Number: FR-B.I. PHARMACEUTICALS,INC./RIDGEFIELD-2012-FF-00825FF

PATIENT
  Sex: Female

DRUGS (1)
  1. SPIRIVA [Suspect]
     Indication: RESPIRATORY FAILURE
     Route: 055
     Dates: start: 20120201, end: 20120510

REACTIONS (2)
  - PRURITUS GENERALISED [None]
  - RESPIRATORY DISTRESS [None]
